FAERS Safety Report 8315426-3 (Version None)
Quarter: 2012Q2

REPORT INFORMATION
  Report Type: 
  Country: None (occurrence: None)
  Receive Date: 20120426
  Receipt Date: 20120419
  Transmission Date: 20120825
  Serious: Yes (Life-Threatening, Hospitalization)
  Sender: FDA-Public Use
  Company Number: US-ABBOTT-12P-163-0909408-00

PATIENT
  Sex: Female

DRUGS (9)
  1. NOVOLOG [Concomitant]
     Indication: TYPE 2 DIABETES MELLITUS
     Dosage: 70/30
     Dates: start: 20090101
  2. METOPROLOL TARTRATE [Concomitant]
     Indication: HYPERTENSION
     Dates: start: 20090301
  3. DOVONEX [Concomitant]
     Indication: PSORIASIS
     Dates: start: 20090831
  4. ADVAIR DISKUS 100/50 [Concomitant]
     Indication: CHRONIC OBSTRUCTIVE PULMONARY DISEASE
     Dosage: 250/50MCG
     Dates: start: 20090831
  5. HYDROCHLOROTHIAZIDE [Concomitant]
     Indication: HYPERTENSION
     Dates: start: 20090301
  6. CLOBETASOL PROPIONATE [Concomitant]
     Indication: PSORIASIS
     Dates: start: 20090831
  7. HUMIRA [Suspect]
     Indication: PSORIASIS
     Route: 058
     Dates: start: 20090901
  8. OMEPRAZOLE [Concomitant]
     Indication: GASTROOESOPHAGEAL REFLUX DISEASE
     Dates: start: 20090831
  9. SINGULAIR [Concomitant]
     Indication: RHINITIS ALLERGIC
     Dates: start: 20090831

REACTIONS (1)
  - MYOCARDIAL INFARCTION [None]
